FAERS Safety Report 9848641 (Version 1)
Quarter: 2014Q1

REPORT INFORMATION
  Report Type: Spontaneous
  Country: US (occurrence: None)
  Receive Date: 20140127
  Receipt Date: 20140127
  Transmission Date: 20141002
  Serious: Yes (Other)
  Sender: FDA-Public Use
  Company Number: None

PATIENT
  Age: 80 Year
  Sex: Female
  Weight: 93.44 kg

DRUGS (13)
  1. TOPROL XL [Suspect]
     Indication: BLOOD PRESSURE
     Route: 048
     Dates: start: 201306
  2. TOPROL XL [Suspect]
     Indication: HEART RATE INCREASED
     Route: 048
     Dates: start: 201306
  3. DIOVAN [Concomitant]
  4. HYDROCHLOROTHIAZIDE [Concomitant]
  5. ASPIRIN [Concomitant]
  6. AMLODIPINE [Concomitant]
  7. METFORMIN [Concomitant]
  8. METOPROLOL(TOPROL XL) [Concomitant]
  9. MECLIZINE [Concomitant]
  10. AMOXICILLIN [Concomitant]
  11. CENTRUM SILVER + 50 [Concomitant]
  12. D3 200 IV [Concomitant]
  13. ASPIRIN [Concomitant]

REACTIONS (2)
  - Drug effect decreased [None]
  - Product substitution issue [None]
